FAERS Safety Report 4484570-3 (Version None)
Quarter: 2004Q3

REPORT INFORMATION
  Report Type: 
  Country: None (occurrence: None)
  Receive Date: 20040921
  Receipt Date: 20031217
  Transmission Date: 20050211
  Serious: Yes (Hospitalization)
  Sender: FDA-Public Use
  Company Number: 163-20785-03120452

PATIENT
  Age: 49 Year
  Sex: Female

DRUGS (6)
  1. THALOMID [Suspect]
     Indication: MULTIPLE MYELOMA
     Dosage: 200 MG, DAILY, ORAL
     Route: 048
     Dates: start: 20020101, end: 20031203
  2. THALOMID [Suspect]
     Indication: MULTIPLE MYELOMA
     Dosage: 200 MG, DAILY, ORAL
     Route: 048
     Dates: start: 20031201
  3. DECADRON [Concomitant]
  4. VITAMINS (VITAMINS) [Concomitant]
  5. CARDIZEM [Concomitant]
  6. SYNTHROID [Concomitant]

REACTIONS (2)
  - BACTERIAL INFECTION [None]
  - CONFUSIONAL STATE [None]
